FAERS Safety Report 8591178 (Version 2)
Quarter: 2016Q1

REPORT INFORMATION
  Report Type: Spontaneous
  Country: DE (occurrence: DE)
  Receive Date: 20120601
  Receipt Date: 20160208
  Transmission Date: 20160526
  Serious: Yes (Death, Life-Threatening, Congenital Anomaly, Other)
  Sender: FDA-Public Use
  Company Number: DE-BRISTOL-MYERS SQUIBB COMPANY-16639379

PATIENT
  Age: 0 Day
  Sex: Male
  Weight: 2.87 kg

DRUGS (3)
  1. METFORMIN HYDROCHLORIDE. [Suspect]
     Active Substance: METFORMIN HYDROCHLORIDE
     Indication: PRODUCT USED FOR UNKNOWN INDICATION
     Dosage: UNK
     Route: 064
     Dates: end: 20100629
  2. FOLSAURE [Concomitant]
     Active Substance: FOLIC ACID
     Indication: PRODUCT USED FOR UNKNOWN INDICATION
     Dosage: UNK
     Route: 064
  3. METHYLDOPA. [Concomitant]
     Active Substance: METHYLDOPA
     Indication: PRODUCT USED FOR UNKNOWN INDICATION
     Dosage: UNK
     Route: 064

REACTIONS (8)
  - Hypoxic-ischaemic encephalopathy [Fatal]
  - Selective eating disorder [Fatal]
  - Hypospadias [Fatal]
  - Cerebral haemorrhage foetal [Fatal]
  - Macrocephaly [Fatal]
  - Neonatal respiratory distress syndrome [Fatal]
  - Foetal exposure during pregnancy [Unknown]
  - Congenital thrombocyte disorder [Fatal]

NARRATIVE: CASE EVENT DATE: 20100629
